FAERS Safety Report 13322627 (Version 2)
Quarter: 2017Q1

REPORT INFORMATION
  Report Type: Spontaneous
  Country: IT (occurrence: IT)
  Receive Date: 20170309
  Receipt Date: 20170317
  Transmission Date: 20170428
  Serious: Yes (Death, Hospitalization)
  Sender: FDA-Public Use
  Company Number: IT-ROCHE-1904105

PATIENT
  Age: 85 Year
  Sex: Female
  Weight: 62 kg

DRUGS (4)
  1. COPEGUS [Suspect]
     Active Substance: RIBAVIRIN
     Indication: CHRONIC HEPATITIS C
     Dosage: 56 TABLETS IN AN HDPE BOTTLE
     Route: 048
     Dates: start: 20170129, end: 20170223
  2. EXVIERA [Suspect]
     Active Substance: DASABUVIR
     Indication: CHRONIC HEPATITIS C
     Route: 048
     Dates: start: 20170129, end: 20170223
  3. COPEGUS [Suspect]
     Active Substance: RIBAVIRIN
     Dosage: 168 TABLETS IN A BOTTLE
     Route: 048
     Dates: start: 20170129, end: 20170223
  4. VIEKIRAX [Suspect]
     Active Substance: OMBITASVIR\PARITAPREVIR\RITONAVIR
     Indication: CHRONIC HEPATITIS C
     Route: 048
     Dates: start: 20170129, end: 20170223

REACTIONS (4)
  - Sepsis [Fatal]
  - Multiple organ dysfunction syndrome [Fatal]
  - Enterococcal infection [Fatal]
  - Klebsiella infection [Fatal]

NARRATIVE: CASE EVENT DATE: 20170223
